FAERS Safety Report 18614833 (Version 3)
Quarter: 2020Q4

REPORT INFORMATION
  Report Type: Report from Study
  Country: BE (occurrence: BE)
  Receive Date: 20201215
  Receipt Date: 20201223
  Transmission Date: 20210114
  Serious: Yes (Hospitalization)
  Sender: FDA-Public Use
  Company Number: BE-AMGEN-BELCT2020201376

PATIENT
  Age: 53 Year
  Sex: Female
  Weight: 57.2 kg

DRUGS (11)
  1. PEMBROLIZUMAB. [Suspect]
     Active Substance: PEMBROLIZUMAB
     Indication: HEPATIC NEOPLASM
     Dosage: 200 MILLIGRAM
     Route: 042
     Dates: start: 20201119
  2. PANTOMED [PANTOPRAZOLE SODIUM SESQUIHYDRATE] [Concomitant]
     Active Substance: PANTOPRAZOLE SODIUM
     Dosage: 40 MILLIGRAM
     Route: 048
     Dates: start: 200810
  3. STEOVIT FORTE [Concomitant]
     Dosage: 1 UNK
     Route: 048
     Dates: start: 200810
  4. LORAZEPAM EG [Concomitant]
     Dosage: 1 MILLIGRAM
     Route: 048
     Dates: start: 201810
  5. ZOLPIDEM [Concomitant]
     Active Substance: ZOLPIDEM TARTRATE
     Dosage: 10 MILLIGRAM
     Route: 048
     Dates: start: 202008
  6. TALIMOGENE LAHERPAREPVEC [Suspect]
     Active Substance: TALIMOGENE LAHERPAREPVEC
     Indication: HEPATIC NEOPLASM
     Dosage: 4 MILLILITER
     Route: 025
     Dates: start: 20201119
  7. XGEVA [Concomitant]
     Active Substance: DENOSUMAB
     Dosage: 1 UNK
     Route: 058
     Dates: start: 201810
  8. UREUM [Concomitant]
     Dosage: 1 UNK
     Route: 061
     Dates: start: 202001
  9. NUROFEN [IBUPROFEN] [Concomitant]
     Active Substance: IBUPROFEN
     Dosage: 400 MILLIGRAM
     Route: 048
     Dates: start: 2008
  10. PARACETAMOL [Concomitant]
     Active Substance: ACETAMINOPHEN
     Indication: PYREXIA
     Dosage: 1 GRAM
     Route: 048
     Dates: start: 201810
  11. PARACETAMOL [Concomitant]
     Active Substance: ACETAMINOPHEN
     Indication: CHILLS

REACTIONS (1)
  - Hypotension [Not Recovered/Not Resolved]

NARRATIVE: CASE EVENT DATE: 20201208
